FAERS Safety Report 5243715-8 (Version None)
Quarter: 2007Q1

REPORT INFORMATION
  Report Type: 
  Country: None (occurrence: None)
  Receive Date: 20070222
  Receipt Date: 20070213
  Transmission Date: 20070707
  Serious: Yes (Hospitalization)
  Sender: FDA-Public Use
  Company Number: DE-BAYER-200710220BVD

PATIENT
  Sex: Male

DRUGS (2)
  1. VARDENAFIL [Suspect]
  2. SPASMEX [Concomitant]

REACTIONS (3)
  - EPISTAXIS [None]
  - HAEMORRHAGE [None]
  - HEPARIN-INDUCED THROMBOCYTOPENIA [None]
